FAERS Safety Report 6676130-0 (Version None)
Quarter: 2010Q2

REPORT INFORMATION
  Report Type: 
  Country: None (occurrence: None)
  Receive Date: 20100412
  Receipt Date: 20100331
  Transmission Date: 20101027
  Serious: Yes (Hospitalization)
  Sender: FDA-Public Use
  Company Number: IT-PFIZER INC-2010036979

PATIENT
  Age: 59 Year
  Sex: Male
  Weight: 82 kg

DRUGS (6)
  1. SUNITINIB MALATE [Suspect]
     Indication: RENAL CELL CARCINOMA
     Dosage: 50 MG, 1X/DAY
     Route: 048
     Dates: start: 20070205, end: 20080801
  2. SUNITINIB MALATE [Suspect]
     Dosage: 37.5 MG ONCE DAILY
     Dates: start: 20080827, end: 20100208
  3. SUNITINIB MALATE [Suspect]
     Dosage: 37.5 MG, 1X/DAY
     Dates: start: 20100301
  4. LEVOTHYROXINE [Concomitant]
     Indication: HYPOTHYROIDISM
  5. NIFEDIPINE [Concomitant]
     Indication: HYPERTENSION
  6. BISOPROLOL [Concomitant]
     Indication: HYPERTENSION

REACTIONS (1)
  - PERICARDITIS [None]
